FAERS Safety Report 11164843 (Version 1)
Quarter: 2015Q2

REPORT INFORMATION
  Report Type: Spontaneous
  Country: SE (occurrence: SE)
  Receive Date: 20150604
  Receipt Date: 20150604
  Transmission Date: 20150821
  Serious: Yes (Disabling)
  Sender: FDA-Public Use
  Company Number: SE-009507513-1506SWE001154

PATIENT
  Age: 55 Year
  Sex: Female

DRUGS (8)
  1. ALENAT [Suspect]
     Active Substance: ALENDRONATE SODIUM
     Route: 048
     Dates: start: 20090602, end: 20110627
  2. FOSAMAX [Suspect]
     Active Substance: ALENDRONATE SODIUM
     Route: 048
     Dates: start: 20060118, end: 20100818
  3. ORENCIA [Concomitant]
     Active Substance: ABATACEPT
  4. SOLU-CORTEF [Concomitant]
     Active Substance: HYDROCORTISONE SODIUM SUCCINATE
  5. RISEDRONATE SODIUM. [Suspect]
     Active Substance: RISEDRONATE SODIUM
     Route: 048
     Dates: start: 20120229, end: 20130305
  6. OPTINATE SEPTIMUM [Suspect]
     Active Substance: RISEDRONATE SODIUM
     Route: 048
     Dates: start: 20100311, end: 20121017
  7. ROACTEMRA [Concomitant]
     Active Substance: TOCILIZUMAB
  8. PREDNISOLON [Concomitant]
     Active Substance: PREDNISOLONE

REACTIONS (1)
  - Osteonecrosis [Unknown]

NARRATIVE: CASE EVENT DATE: 20091014
